FAERS Safety Report 7738829-4 (Version None)
Quarter: 2011Q3

REPORT INFORMATION
  Report Type: 
  Country: None (occurrence: None)
  Receive Date: 20110909
  Receipt Date: 20110830
  Transmission Date: 20111222
  Serious: Yes (Hospitalization)
  Sender: FDA-Public Use
  Company Number: US-BIOGENIDEC-2011BI004160

PATIENT
  Age: 51 Year
  Sex: Female

DRUGS (1)
  1. TYSABRI [Suspect]
     Indication: MULTIPLE SCLEROSIS
     Route: 042
     Dates: start: 20101210

REACTIONS (17)
  - OVARIAN CYST [None]
  - UTERINE CYST [None]
  - LIVEDO RETICULARIS [None]
  - VAGINAL HAEMATOMA [None]
  - PALATAL OEDEMA [None]
  - IMPAIRED HEALING [None]
  - CYSTITIS [None]
  - COGNITIVE DISORDER [None]
  - FATIGUE [None]
  - ARTHRALGIA [None]
  - DYSSTASIA [None]
  - MULTIPLE SCLEROSIS RELAPSE [None]
  - CONSTIPATION [None]
  - INSOMNIA [None]
  - MUSCLE SPASTICITY [None]
  - OVARIAN TORSION [None]
  - MUSCULAR WEAKNESS [None]
